FAERS Safety Report 14609248 (Version 1)
Quarter: 2018Q1

REPORT INFORMATION
  Report Type: Spontaneous
  Country: US (occurrence: US)
  Receive Date: 20180307
  Receipt Date: 20180307
  Transmission Date: 20180509
  Serious: No
  Sender: FDA-Public Use
  Company Number: US-BAYER-2018-042779

PATIENT
  Age: 83 Year
  Sex: Female
  Weight: 48.98 kg

DRUGS (4)
  1. MIRALAX [Suspect]
     Active Substance: POLYETHYLENE GLYCOL 3350
     Indication: GASTROINTESTINAL DISORDER
     Dosage: 1 DF, UNK
     Route: 048
  2. DIGESTIVE ENZYMES [Concomitant]
     Active Substance: UNSPECIFIED INGREDIENT
  3. FISH OIL [Concomitant]
     Active Substance: FISH OIL
  4. VITAMIN D [COLECALCIFEROL] [Concomitant]

REACTIONS (4)
  - Product use issue [Unknown]
  - Abdominal distension [Not Recovered/Not Resolved]
  - Underdose [Unknown]
  - Diarrhoea [Unknown]
